FAERS Safety Report 25607306 (Version 1)
Quarter: 2025Q3

REPORT INFORMATION
  Report Type: Spontaneous
  Country: US (occurrence: US)
  Receive Date: 20250725
  Receipt Date: 20250725
  Transmission Date: 20251021
  Serious: Yes (Hospitalization, Other)
  Sender: ADMA BIOLOGICS
  Company Number: US-ADMA BIOLOGICS INC.-US-2025ADM000223

PATIENT
  Age: 50 Year
  Sex: Female

DRUGS (2)
  1. HUMAN IMMUNOGLOBULIN G [Suspect]
     Active Substance: HUMAN IMMUNOGLOBULIN G
     Indication: Heparin-induced thrombocytopenia
     Route: 042
  2. HEPARIN [Concomitant]
     Active Substance: HEPARIN SODIUM
     Indication: Preoperative care
     Route: 065

REACTIONS (5)
  - Disseminated tuberculosis [Unknown]
  - Acute respiratory failure [Unknown]
  - Pneumonia mycoplasmal [Unknown]
  - Post procedural haemorrhage [Unknown]
  - Off label use [Unknown]
